FAERS Safety Report 17958786 (Version 4)
Quarter: 2020Q3

REPORT INFORMATION
  Report Type: Spontaneous
  Country: US (occurrence: US)
  Receive Date: 20200629
  Receipt Date: 20200727
  Transmission Date: 20201103
  Serious: No
  Sender: FDA-Public Use
  Company Number: US-PFIZER INC-2020249190

PATIENT
  Age: 55 Year
  Sex: Female

DRUGS (1)
  1. INLYTA [Suspect]
     Active Substance: AXITINIB
     Dosage: 5 MG
     Dates: start: 20200618, end: 20200715

REACTIONS (5)
  - Fatigue [Unknown]
  - Blood pressure increased [Unknown]
  - Dysphonia [Unknown]
  - Diarrhoea [Unknown]
  - Amnesia [Unknown]

NARRATIVE: CASE EVENT DATE: 2020
